FAERS Safety Report 18950541 (Version 1)
Quarter: 2021Q1

REPORT INFORMATION
  Report Type: Spontaneous
  Country: US (occurrence: US)
  Receive Date: 20210228
  Receipt Date: 20210228
  Transmission Date: 20210420
  Serious: No
  Sender: FDA-Public Use
  Company Number: US-ROCHE-2668996

PATIENT
  Sex: Male

DRUGS (1)
  1. XOLAIR [Suspect]
     Active Substance: OMALIZUMAB
     Indication: PRODUCT USED FOR UNKNOWN INDICATION
     Route: 065

REACTIONS (6)
  - Testicular pain [Unknown]
  - Testicular swelling [Unknown]
  - Decreased appetite [Unknown]
  - Groin pain [Unknown]
  - Musculoskeletal pain [Unknown]
  - Pain in extremity [Unknown]
